FAERS Safety Report 5673836-7 (Version None)
Quarter: 2008Q2

REPORT INFORMATION
  Report Type: 
  Country: None (occurrence: None)
  Receive Date: 20080226
  Receipt Date: 20070727
  Transmission Date: 20081010
  Serious: Yes (Hospitalization, Disabling)
  Sender: FDA-Public Use
  Company Number: 509472

PATIENT
  Age: 22 Year
  Sex: Male
  Weight: 81.6 kg

DRUGS (1)
  1. ACCUTANE [Suspect]
     Indication: ACNE
     Dates: start: 19990615, end: 20001115

REACTIONS (8)
  - ANAEMIA [None]
  - COLITIS ULCERATIVE [None]
  - DEPRESSED MOOD [None]
  - ENTEROCOLITIS INFECTIOUS [None]
  - ILEUS [None]
  - INFLAMMATORY BOWEL DISEASE [None]
  - SOMNOLENCE [None]
  - WEIGHT DECREASED [None]
